FAERS Safety Report 20232178 (Version 2)
Quarter: 2022Q1

REPORT INFORMATION
  Report Type: Report from Study
  Country: TH (occurrence: TH)
  Receive Date: 20211227
  Receipt Date: 20220224
  Transmission Date: 20220423
  Serious: Yes (Other)
  Sender: FDA-Public Use
  Company Number: TH-BAYER-2021A259563

PATIENT
  Age: 63 Year
  Sex: Male

DRUGS (3)
  1. STIVARGA [Suspect]
     Active Substance: REGORAFENIB
     Indication: Colorectal cancer
     Dosage: 120 MG, QD
     Dates: start: 20211007
  2. STIVARGA [Suspect]
     Active Substance: REGORAFENIB
     Indication: Colorectal cancer
     Dosage: DAILY DOSE 80 MG
     Dates: start: 20211203, end: 20211216
  3. DIABEDERM [Concomitant]
     Dosage: UNK

REACTIONS (11)
  - Erythema [Not Recovered/Not Resolved]
  - Peripheral swelling [Not Recovered/Not Resolved]
  - Pain in extremity [Not Recovered/Not Resolved]
  - Gait inability [Not Recovered/Not Resolved]
  - Inflammation [Not Recovered/Not Resolved]
  - Blister [Not Recovered/Not Resolved]
  - Loss of personal independence in daily activities [Not Recovered/Not Resolved]
  - Burning sensation [Recovering/Resolving]
  - Peripheral swelling [Recovering/Resolving]
  - Off label use [None]
  - Skin exfoliation [None]

NARRATIVE: CASE EVENT DATE: 20211007
